FAERS Safety Report 21176443 (Version 1)
Quarter: 2022Q3

REPORT INFORMATION
  Report Type: Spontaneous
  Country: CN (occurrence: CN)
  Receive Date: 20220805
  Receipt Date: 20220805
  Transmission Date: 20221026
  Serious: Yes (Hospitalization)
  Sender: FDA-Public Use
  Company Number: CN-JNJFOC-20220805176

PATIENT
  Age: 69 Year

DRUGS (3)
  1. TYLENOL 8HR [Suspect]
     Active Substance: ACETAMINOPHEN
     Indication: Post procedural fever
     Route: 048
     Dates: start: 20220630, end: 20220630
  2. INDOMETHACIN [Suspect]
     Active Substance: INDOMETHACIN
     Indication: Post procedural fever
     Route: 054
     Dates: start: 20220701, end: 20220701
  3. PIPERACILLIN SODIUM\TAZOBACTAM SODIUM [Suspect]
     Active Substance: PIPERACILLIN SODIUM\TAZOBACTAM SODIUM
     Indication: Post procedural fever
     Route: 041
     Dates: start: 20220630, end: 20220630

REACTIONS (1)
  - Epidermolysis bullosa [Recovering/Resolving]

NARRATIVE: CASE EVENT DATE: 20220701
